FAERS Safety Report 6986167-X (Version None)
Quarter: 2010Q3

REPORT INFORMATION
  Report Type: 
  Country: None (occurrence: None)
  Receive Date: 20100915
  Receipt Date: 20090709
  Transmission Date: 20110219
  Serious: No
  Sender: FDA-Public Use
  Company Number: US-WYE-H09488609

PATIENT
  Sex: Female
  Weight: 58.11 kg

DRUGS (13)
  1. PRISTIQ [Suspect]
     Indication: FIBROMYALGIA
     Route: 048
     Dates: start: 20090401
  2. DURAGESIC-100 [Concomitant]
  3. ELMIRON [Concomitant]
  4. PRAVASTATIN [Concomitant]
  5. CHLORDIAZEPOXIDE W/CLIDINIUM BROMIDE [Concomitant]
  6. DEXTROAMPHETAMINE SULFATE [Concomitant]
  7. CLONAZEPAM [Concomitant]
  8. FLEXERIL [Concomitant]
  9. CALCITRIOL [Concomitant]
  10. MACRODANTIN [Concomitant]
  11. VICODIN [Concomitant]
  12. ESTRADIOL [Concomitant]
  13. AMBIEN [Concomitant]

REACTIONS (1)
  - ALOPECIA [None]
